FAERS Safety Report 10424838 (Version 3)
Quarter: 2015Q1

REPORT INFORMATION
  Report Type: Spontaneous
  Country: FR (occurrence: FR)
  Receive Date: 20140902
  Receipt Date: 20150210
  Transmission Date: 20150720
  Serious: Yes (Hospitalization, Other)
  Sender: FDA-Public Use
  Company Number: FR-PFIZER INC-2014240473

PATIENT
  Age: 69 Year
  Sex: Male

DRUGS (9)
  1. GLUCOPHAGE [Concomitant]
     Active Substance: METFORMIN HYDROCHLORIDE
     Dosage: UNK, LONG-STANDING TREATMENT
  2. SOLU-MEDROL [Concomitant]
     Active Substance: METHYLPREDNISOLONE SODIUM SUCCINATE
     Indication: BLADDER NEOPLASM
     Dosage: UNK
  3. COAPROVEL [Concomitant]
     Active Substance: HYDROCHLOROTHIAZIDE\IRBESARTAN
     Dosage: UNK, LONG-STANDING TREATMENT
  4. CISPLATIN. [Suspect]
     Active Substance: CISPLATIN
     Indication: BLADDER NEOPLASM
     Dosage: 130 MG, 1 IN 15 D
     Route: 042
  5. VELBE [Suspect]
     Active Substance: VINBLASTINE SULFATE
     Indication: BLADDER NEOPLASM
     Dosage: 5.49 MG, 1 IN 15 D
     Route: 042
     Dates: start: 20140618, end: 20140730
  6. NOVONORM [Concomitant]
     Active Substance: REPAGLINIDE
     Dosage: UNK, LONG-STANDING TREATMENT
  7. DOXORUBICIN [Suspect]
     Active Substance: DOXORUBICIN
     Indication: BLADDER NEOPLASM
     Dosage: 55.8 MG, 1 IN 15 D
     Route: 042
     Dates: start: 20140618, end: 20140730
  8. METHOTREXATE [Suspect]
     Active Substance: METHOTREXATE
     Indication: BLADDER NEOPLASM
     Dosage: 54.9 MG, 1 IN 15 D
     Route: 042
     Dates: start: 20140618, end: 20140730
  9. ZYLORIC [Concomitant]
     Active Substance: ALLOPURINOL
     Dosage: UNK, LONG-STANDING TREATMENT

REACTIONS (4)
  - Vomiting [Recovered/Resolved]
  - Diabetes mellitus [Unknown]
  - Hypokalaemia [Recovered/Resolved]
  - Condition aggravated [Unknown]

NARRATIVE: CASE EVENT DATE: 201408
